FAERS Safety Report 23884962 (Version 2)
Quarter: 2024Q2

REPORT INFORMATION
  Report Type: Spontaneous
  Country: KR (occurrence: KR)
  Receive Date: 20240522
  Receipt Date: 20240523
  Transmission Date: 20240716
  Serious: Yes (Hospitalization, Other)
  Sender: FDA-Public Use
  Company Number: KR-STRIDES ARCOLAB LIMITED-2024SP005867

PATIENT
  Age: 3 Year
  Sex: Male
  Weight: 17.1 kg

DRUGS (8)
  1. PREDNISOLONE [Suspect]
     Active Substance: PREDNISOLONE
     Indication: Multisystem inflammatory syndrome in children
     Dosage: 1 MILLIGRAM/KILOGRAM, QD (PER DAY)
     Route: 048
  2. PREDNISOLONE [Suspect]
     Active Substance: PREDNISOLONE
     Dosage: UNK (DOSE REDUCED)
     Route: 065
  3. HUMAN IMMUNOGLOBULIN G [Suspect]
     Active Substance: HUMAN IMMUNOGLOBULIN G
     Indication: Multisystem inflammatory syndrome in children
     Dosage: 2 GRAM PER KILOGRAM
     Route: 042
  4. METHYLPREDNISOLONE [Suspect]
     Active Substance: METHYLPREDNISOLONE
     Indication: Multisystem inflammatory syndrome in children
     Dosage: 1 MILLIGRAM/KILOGRAM, QD (PER DAY) (LOW-DOSE)
     Route: 042
  5. METHYLPREDNISOLONE [Suspect]
     Active Substance: METHYLPREDNISOLONE
     Dosage: 30 MILLIGRAM/KILOGRAM, QD (PER DAY), PULSE DOSE/HIGH-DOSE
     Route: 042
  6. INFLIXIMAB [Suspect]
     Active Substance: INFLIXIMAB
     Indication: Multisystem inflammatory syndrome in children
     Dosage: UNK
     Route: 065
  7. ASPIRIN [Concomitant]
     Active Substance: ASPIRIN
     Indication: Multisystem inflammatory syndrome in children
     Dosage: UNK
     Route: 065
  8. ASPIRIN [Concomitant]
     Active Substance: ASPIRIN
     Indication: Coronary artery dilatation

REACTIONS (4)
  - Abdominal lymphadenopathy [Recovered/Resolved]
  - Terminal ileitis [Recovered/Resolved]
  - Hepatomegaly [Recovered/Resolved]
  - Cytomegalovirus infection [Recovered/Resolved]
